FAERS Safety Report 13038744 (Version 1)
Quarter: 2016Q4

REPORT INFORMATION
  Report Type: Spontaneous
  Country: DE (occurrence: DE)
  Receive Date: 20161219
  Receipt Date: 20161219
  Transmission Date: 20170207
  Serious: Yes (Death)
  Sender: FDA-Public Use
  Company Number: PHHY2016DE170038

PATIENT
  Age: 43 Year
  Sex: Female

DRUGS (1)
  1. ACETYLSALICYLIC ACID [Suspect]
     Active Substance: ASPIRIN
     Indication: PRODUCT USED FOR UNKNOWN INDICATION
     Dosage: 130 G
     Route: 065

REACTIONS (8)
  - Hypocalcaemia [Fatal]
  - Tetany [Fatal]
  - Cardiac arrest [Fatal]
  - Hyperkalaemia [Fatal]
  - Hyperphosphataemia [Fatal]
  - Vasospasm [Fatal]
  - Suicide attempt [Fatal]
  - Toxicity to various agents [Fatal]
